FAERS Safety Report 7351408-6 (Version None)
Quarter: 2011Q1

REPORT INFORMATION
  Report Type: 
  Country: None (occurrence: None)
  Receive Date: 20110304
  Receipt Date: 20110222
  Transmission Date: 20110831
  Serious: Yes (Death, Other)
  Sender: FDA-Public Use
  Company Number: 2010AL003507

PATIENT
  Age: 28 Year
  Sex: Male

DRUGS (4)
  1. DIHYDROCODEINE COMPOUND [Suspect]
     Indication: TOOTHACHE
  2. OXYCODONE HCL [Suspect]
     Indication: TOOTHACHE
  3. NAPROXEN [Suspect]
  4. DIAZEPAM [Suspect]

REACTIONS (3)
  - MULTIPLE DRUG OVERDOSE ACCIDENTAL [None]
  - RESPIRATORY DEPRESSION [None]
  - BLOOD ALCOHOL INCREASED [None]
